FAERS Safety Report 8887539 (Version 2)
Quarter: 2012Q4

REPORT INFORMATION
  Report Type: Spontaneous
  Country: MX (occurrence: None)
  Receive Date: 20121031
  Receipt Date: 20121107
  Transmission Date: 20130627
  Serious: Yes (Other)
  Sender: FDA-Public Use
  Company Number: MPS1-1000789

PATIENT
  Age: 7 Year
  Sex: Male
  Weight: 14.6 kg

DRUGS (3)
  1. ALDURAZYME [Suspect]
     Indication: MUCOPOLYSACCHARIDOSIS I
     Route: 042
     Dates: start: 201004
  2. DIPHENHYDRAMINE [Concomitant]
  3. PARACETAMOL (PARACETAMOL) [Concomitant]

REACTIONS (5)
  - Anaphylactic shock [None]
  - Bronchospasm [None]
  - Upper respiratory tract infection [None]
  - Pneumonia [None]
  - Acute pulmonary oedema [None]
